FAERS Safety Report 6123432-2 (Version None)
Quarter: 2009Q1

REPORT INFORMATION
  Report Type: 
  Country: None (occurrence: None)
  Receive Date: 20090318
  Receipt Date: 20090312
  Transmission Date: 20090719
  Serious: No
  Sender: FDA-Public Use
  Company Number: US-B.I. PHARMACEUTICALS,INC./RIDGEFIELD-2009-BP-03166BP

PATIENT
  Sex: Female

DRUGS (4)
  1. SPIRIVA [Suspect]
     Indication: CHRONIC OBSTRUCTIVE PULMONARY DISEASE
     Dosage: 18MCG
     Route: 055
     Dates: start: 20090201
  2. LOTREL [Concomitant]
     Indication: HYPERTENSION
  3. LIBRAX [Concomitant]
     Indication: IRRITABLE BOWEL SYNDROME
  4. ASACOL [Concomitant]
     Indication: IRRITABLE BOWEL SYNDROME

REACTIONS (5)
  - COUGH [None]
  - DRUG INEFFECTIVE [None]
  - HYPERSENSITIVITY [None]
  - RETCHING [None]
  - VOMITING [None]
